FAERS Safety Report 16790615 (Version 1)
Quarter: 2019Q3

REPORT INFORMATION
  Report Type: Spontaneous
  Country: PT (occurrence: PT)
  Receive Date: 20190910
  Receipt Date: 20190910
  Transmission Date: 20191005
  Serious: Yes (Hospitalization, Other)
  Sender: FDA-Public Use
  Company Number: PT-MYLANLABS-2019M1083708

PATIENT
  Age: 25 Year
  Sex: Female

DRUGS (1)
  1. CLOZAPINE MYLAN [Suspect]
     Active Substance: CLOZAPINE
     Indication: SCHIZOAFFECTIVE DISORDER

REACTIONS (7)
  - Proteinuria [Unknown]
  - Tubulointerstitial nephritis [Unknown]
  - Renal tubular acidosis [Unknown]
  - Product use in unapproved indication [Unknown]
  - Anaemia [Unknown]
  - Acute kidney injury [Unknown]
  - Systemic inflammatory response syndrome [Unknown]
